FAERS Safety Report 11138187 (Version 2)
Quarter: 2015Q3

REPORT INFORMATION
  Report Type: Spontaneous
  Country: JP (occurrence: JP)
  Receive Date: 20150526
  Receipt Date: 20150701
  Transmission Date: 20151125
  Serious: Yes (Hospitalization)
  Sender: FDA-Public Use
  Company Number: JP-BAYER-2015-232775

PATIENT
  Sex: Female

DRUGS (5)
  1. GASMOTIN [Concomitant]
     Active Substance: MOSAPRIDE CITRATE
     Route: 048
  2. NORVASC [Concomitant]
     Active Substance: AMLODIPINE BESYLATE
     Route: 048
  3. OMEPRAL [Concomitant]
     Active Substance: OMEPRAZOLE
  4. BAYASPIRIN [Suspect]
     Active Substance: ASPIRIN
     Indication: CEREBROVASCULAR ACCIDENT PROPHYLAXIS
     Dosage: 100 MG, UNK
     Route: 048
     Dates: start: 201410, end: 20141016
  5. BAYASPIRIN [Suspect]
     Active Substance: ASPIRIN
     Indication: CEREBROVASCULAR ACCIDENT PROPHYLAXIS
     Dosage: 100 MG, UNK
     Route: 048
     Dates: end: 2014

REACTIONS (4)
  - Haematemesis [Recovered/Resolved]
  - Melaena [Recovered/Resolved]
  - Diverticulum intestinal haemorrhagic [Recovered/Resolved]
  - Haematemesis [None]

NARRATIVE: CASE EVENT DATE: 20140929
